FAERS Safety Report 20176820 (Version 3)
Quarter: 2024Q4

REPORT INFORMATION
  Report Type: Spontaneous
  Country: CA (occurrence: CA)
  Receive Date: 20211213
  Receipt Date: 20241119
  Transmission Date: 20250115
  Serious: Yes (Other)
  Sender: ALEXION PHARMACEUTICALS
  Company Number: 2021A856363

PATIENT
  Age: 59 Year
  Weight: 89 kg

DRUGS (62)
  1. ROSUVASTATIN [Suspect]
     Active Substance: ROSUVASTATIN
     Indication: Product used for unknown indication
     Dosage: 5 MILLIGRAM, UNK
     Route: 065
  2. ROSUVASTATIN [Suspect]
     Active Substance: ROSUVASTATIN
     Dosage: 5 MILLIGRAM, UNK
  3. ROSUVASTATIN [Suspect]
     Active Substance: ROSUVASTATIN
     Dosage: 5 MILLIGRAM, UNK
     Route: 065
  4. ROSUVASTATIN [Suspect]
     Active Substance: ROSUVASTATIN
     Dosage: 5 MILLIGRAM, UNK
  5. METFORMIN HYDROCHLORIDE [Suspect]
     Active Substance: METFORMIN HYDROCHLORIDE
     Indication: Product used for unknown indication
     Dosage: 2 EVERY 1 DAYS
     Route: 065
  6. METFORMIN HYDROCHLORIDE [Suspect]
     Active Substance: METFORMIN HYDROCHLORIDE
     Dosage: 2 EVERY 1 DAYS
  7. METFORMIN HYDROCHLORIDE [Suspect]
     Active Substance: METFORMIN HYDROCHLORIDE
     Dosage: 2 EVERY 1 DAYS
     Route: 065
  8. METFORMIN HYDROCHLORIDE [Suspect]
     Active Substance: METFORMIN HYDROCHLORIDE
     Dosage: 2 EVERY 1 DAYS
  9. AMLODIPINE BESYLATE [Suspect]
     Active Substance: AMLODIPINE BESYLATE
     Indication: Product used for unknown indication
     Route: 065
  10. AMLODIPINE BESYLATE [Suspect]
     Active Substance: AMLODIPINE BESYLATE
  11. AMLODIPINE BESYLATE [Suspect]
     Active Substance: AMLODIPINE BESYLATE
     Route: 065
  12. AMLODIPINE BESYLATE [Suspect]
     Active Substance: AMLODIPINE BESYLATE
  13. IMODIUM [Suspect]
     Active Substance: LOPERAMIDE HYDROCHLORIDE
     Indication: Product used for unknown indication
     Route: 065
  14. IMODIUM [Suspect]
     Active Substance: LOPERAMIDE HYDROCHLORIDE
  15. IMODIUM [Suspect]
     Active Substance: LOPERAMIDE HYDROCHLORIDE
     Route: 065
  16. IMODIUM [Suspect]
     Active Substance: LOPERAMIDE HYDROCHLORIDE
  17. SANDOSTATIN [Suspect]
     Active Substance: OCTREOTIDE ACETATE
     Indication: Neuroendocrine tumour
     Dosage: 20 MILLIGRAM, UNK, FREQUENCY: Q4WK
  18. SANDOSTATIN [Suspect]
     Active Substance: OCTREOTIDE ACETATE
     Indication: Carcinoid tumour
     Dosage: 20 MILLIGRAM, UNK, FREQUENCY: Q4WK
  19. SANDOSTATIN [Suspect]
     Active Substance: OCTREOTIDE ACETATE
     Dosage: 20 MILLIGRAM, UNK, FREQUENCY: Q4WK
  20. SANDOSTATIN [Suspect]
     Active Substance: OCTREOTIDE ACETATE
     Dosage: 20 MILLIGRAM, UNK, FREQUENCY: Q4WK
  21. SANDOSTATIN [Suspect]
     Active Substance: OCTREOTIDE ACETATE
     Dosage: 20 MILLIGRAM, UNK, FREQUENCY: Q4WK
  22. SANDOSTATIN [Suspect]
     Active Substance: OCTREOTIDE ACETATE
     Dosage: 20 MILLIGRAM, UNK, FREQUENCY: Q4WK
  23. SANDOSTATIN [Suspect]
     Active Substance: OCTREOTIDE ACETATE
     Dosage: 20 MILLIGRAM, UNK, FREQUENCY: Q4WK
  24. SANDOSTATIN [Suspect]
     Active Substance: OCTREOTIDE ACETATE
     Dosage: 20 MILLIGRAM, UNK, FREQUENCY: Q4WK
  25. SANDOSTATIN [Suspect]
     Active Substance: OCTREOTIDE ACETATE
     Dosage: 20 MILLIGRAM, UNK, FREQUENCY: Q4WK
  26. SANDOSTATIN [Suspect]
     Active Substance: OCTREOTIDE ACETATE
     Dosage: 20 MILLIGRAM, UNK, FREQUENCY: Q4WK
  27. SANDOSTATIN [Suspect]
     Active Substance: OCTREOTIDE ACETATE
     Dosage: 20 MILLIGRAM, UNK, FREQUENCY: Q4WK
  28. SANDOSTATIN [Suspect]
     Active Substance: OCTREOTIDE ACETATE
     Dosage: 20 MILLIGRAM, UNK, FREQUENCY: Q4WK
  29. ZOPICLONE [Suspect]
     Active Substance: ZOPICLONE
     Indication: Product used for unknown indication
     Route: 065
  30. ZOPICLONE [Suspect]
     Active Substance: ZOPICLONE
  31. ZOPICLONE [Suspect]
     Active Substance: ZOPICLONE
     Route: 065
  32. ZOPICLONE [Suspect]
     Active Substance: ZOPICLONE
  33. ALTACE [Concomitant]
     Active Substance: RAMIPRIL
     Indication: Product used for unknown indication
     Dosage: 2 EVERY 1 DAYS
     Route: 065
  34. ALTACE [Concomitant]
     Active Substance: RAMIPRIL
     Dosage: 2 EVERY 1 DAYS
  35. ALTACE [Concomitant]
     Active Substance: RAMIPRIL
     Dosage: 2 EVERY 1 DAYS
     Route: 065
  36. ALTACE [Concomitant]
     Active Substance: RAMIPRIL
     Dosage: 2 EVERY 1 DAYS
  37. GLYBURIDE [Concomitant]
     Active Substance: GLYBURIDE
     Indication: Product used for unknown indication
     Dosage: 2 EVERY 1 DAYS
     Route: 065
  38. GLYBURIDE [Concomitant]
     Active Substance: GLYBURIDE
     Dosage: 2 EVERY 1 DAYS
  39. GLYBURIDE [Concomitant]
     Active Substance: GLYBURIDE
     Dosage: 2 EVERY 1 DAYS
     Route: 065
  40. GLYBURIDE [Concomitant]
     Active Substance: GLYBURIDE
     Dosage: 2 EVERY 1 DAYS
  41. HYDROCHLOROTHIAZIDE [Concomitant]
     Active Substance: HYDROCHLOROTHIAZIDE
     Indication: Product used for unknown indication
     Dosage: 1 EVERY 1 DAYS
     Route: 065
  42. HYDROCHLOROTHIAZIDE [Concomitant]
     Active Substance: HYDROCHLOROTHIAZIDE
     Dosage: 1 EVERY 1 DAYS
  43. HYDROCHLOROTHIAZIDE [Concomitant]
     Active Substance: HYDROCHLOROTHIAZIDE
     Dosage: 1 EVERY 1 DAYS
     Route: 065
  44. HYDROCHLOROTHIAZIDE [Concomitant]
     Active Substance: HYDROCHLOROTHIAZIDE
     Dosage: 1 EVERY 1 DAYS
  45. LUTETIUM LU-177 [Concomitant]
     Active Substance: LUTETIUM LU-177
     Indication: Product used for unknown indication
     Route: 065
  46. LUTETIUM LU-177 [Concomitant]
     Active Substance: LUTETIUM LU-177
  47. LUTETIUM LU-177 [Concomitant]
     Active Substance: LUTETIUM LU-177
     Route: 065
  48. LUTETIUM LU-177 [Concomitant]
     Active Substance: LUTETIUM LU-177
  49. LUTETIUM LU-177 [Concomitant]
     Active Substance: LUTETIUM LU-177
     Route: 065
  50. LUTETIUM LU-177 [Concomitant]
     Active Substance: LUTETIUM LU-177
  51. QUINAPRIL [Concomitant]
     Active Substance: QUINAPRIL
     Indication: Product used for unknown indication
     Route: 065
  52. QUINAPRIL [Concomitant]
     Active Substance: QUINAPRIL
  53. QUINAPRIL [Concomitant]
     Active Substance: QUINAPRIL
     Route: 065
  54. QUINAPRIL [Concomitant]
     Active Substance: QUINAPRIL
  55. QUINAPRIL HYDROCHLORIDE [Concomitant]
     Active Substance: QUINAPRIL HYDROCHLORIDE
     Indication: Product used for unknown indication
     Route: 065
  56. QUINAPRIL HYDROCHLORIDE [Concomitant]
     Active Substance: QUINAPRIL HYDROCHLORIDE
  57. QUINAPRIL HYDROCHLORIDE [Concomitant]
     Active Substance: QUINAPRIL HYDROCHLORIDE
     Route: 065
  58. QUINAPRIL HYDROCHLORIDE [Concomitant]
     Active Substance: QUINAPRIL HYDROCHLORIDE
  59. LINAGLIPTIN [Concomitant]
     Active Substance: LINAGLIPTIN
     Indication: Product used for unknown indication
     Dosage: 1 EVERY 1 DAYS
     Route: 065
  60. LINAGLIPTIN [Concomitant]
     Active Substance: LINAGLIPTIN
     Dosage: 1 EVERY 1 DAYS
  61. LINAGLIPTIN [Concomitant]
     Active Substance: LINAGLIPTIN
     Dosage: 1 EVERY 1 DAYS
     Route: 065
  62. LINAGLIPTIN [Concomitant]
     Active Substance: LINAGLIPTIN
     Dosage: 1 EVERY 1 DAYS

REACTIONS (28)
  - 5-hydroxyindolacetic acid increased [Recovered/Resolved]
  - Arteriosclerosis coronary artery [Recovered/Resolved]
  - Aspartate aminotransferase increased [Recovered/Resolved]
  - Blood follicle stimulating hormone increased [Recovered/Resolved]
  - Blood glucose increased [Recovered/Resolved]
  - Blood mercury abnormal [Recovered/Resolved]
  - Blood potassium decreased [Recovered/Resolved]
  - Blood pressure diastolic decreased [Recovered/Resolved]
  - Blood pressure diastolic decreased [Recovered/Resolved]
  - Diarrhoea [Recovered/Resolved]
  - Expired product administered [Recovered/Resolved]
  - Fibrous histiocytoma [Recovered/Resolved]
  - Gamma-glutamyltransferase increased [Recovered/Resolved]
  - Gamma-glutamyltransferase increased [Recovered/Resolved]
  - Haematocrit decreased [Recovered/Resolved]
  - Haemoglobin decreased [Recovered/Resolved]
  - Hepatic neoplasm [Recovered/Resolved]
  - Inappropriate schedule of product administration [Recovered/Resolved]
  - Low density lipoprotein decreased [Recovered/Resolved]
  - Movement disorder [Recovered/Resolved]
  - Nausea [Recovered/Resolved]
  - Neoplasm [Recovered/Resolved]
  - Platelet count decreased [Recovered/Resolved]
  - Pruritus [Recovered/Resolved]
  - Red blood cell count decreased [Recovered/Resolved]
  - Vomiting [Recovered/Resolved]
  - Urticaria [Recovered/Resolved]
  - Syncope [Recovered/Resolved]
